FAERS Safety Report 7500613-4 (Version None)
Quarter: 2011Q2

REPORT INFORMATION
  Report Type: 
  Country: None (occurrence: None)
  Receive Date: 20110524
  Receipt Date: 20100729
  Transmission Date: 20111010
  Serious: No
  Sender: FDA-Public Use
  Company Number: US-NOVEN-ALL1-2010-04060

PATIENT

DRUGS (4)
  1. DAYTRANA [Suspect]
     Dosage: 30 MG, 1X/DAY:QD
     Route: 062
     Dates: start: 20100101, end: 20100101
  2. DAYTRANA [Suspect]
     Dosage: 30 MG, 1X/DAY:QD
     Route: 062
     Dates: start: 20100101
  3. PRILOSEC [Concomitant]
     Dosage: UNK, UNKNOWN
     Route: 048
  4. SUBOXONE [Concomitant]
     Dosage: UNK, UNKNOWN
     Route: 060
     Dates: start: 20090101

REACTIONS (5)
  - APPLICATION SITE IRRITATION [None]
  - PRODUCT QUALITY ISSUE [None]
  - APPLICATION SITE ERYTHEMA [None]
  - APPLICATION SITE PRURITUS [None]
  - OFF LABEL USE [None]
